FAERS Safety Report 10023432 (Version 2)
Quarter: 2014Q1

REPORT INFORMATION
  Report Type: Spontaneous
  Country: US (occurrence: None)
  Receive Date: 20131224
  Receipt Date: 20140204
  Transmission Date: 20141002
  Serious: Yes (Hospitalization, Other)
  Sender: FDA-Public Use
  Company Number: 54973 AE # 1521

PATIENT
  Age: 6 Month
  Sex: Male
  Weight: 7.71 kg

DRUGS (1)
  1. HYLAND^S BABY TEETHING TABLETS [Suspect]
     Indication: TEETHING
     Dosage: 2-3TABS UP TO TID INTERM

REACTIONS (3)
  - Infantile spasms [None]
  - Gastrooesophageal reflux disease [None]
  - Convulsion [None]
